FAERS Safety Report 5347903-1 (Version None)
Quarter: 2007Q2

REPORT INFORMATION
  Report Type: 
  Country: None (occurrence: None)
  Receive Date: 20070514
  Receipt Date: 20070215
  Transmission Date: 20071010
  Serious: Yes (Other)
  Sender: FDA-Public Use
  Company Number: 15728

PATIENT
  Age: 57 Year
  Sex: Male
  Weight: 63.9572 kg

DRUGS (6)
  1. CARBOPLATIN [Suspect]
     Indication: NON-SMALL CELL LUNG CANCER
     Dosage: 495 MG PER_CYCLE IV
     Route: 042
     Dates: start: 20070215, end: 20070215
  2. TAXOL [Concomitant]
  3. BENADRYL [Concomitant]
  4. DECADRON [Concomitant]
  5. ZOFRAN [Concomitant]
  6. CIMETIDINE HCL [Concomitant]

REACTIONS (1)
  - ANAPHYLACTIC REACTION [None]
